FAERS Safety Report 18572791 (Version 1)
Quarter: 2020Q4

REPORT INFORMATION
  Report Type: Other
  Country: US (occurrence: US)
  Receive Date: 20201203
  Receipt Date: 20201203
  Transmission Date: 20210114
  Serious: Yes (Hospitalization)
  Sender: FDA-Public Use
  Company Number: US-ROCHE-2722744

PATIENT
  Sex: Female

DRUGS (20)
  1. PREVIDENT 5000 BOOSTER [Concomitant]
     Active Substance: SODIUM FLUORIDE
  2. SINGULAIR [Concomitant]
     Active Substance: MONTELUKAST SODIUM
  3. SYNTHROID [Concomitant]
     Active Substance: LEVOTHYROXINE SODIUM
     Dosage: 50MCG
     Route: 048
  4. LATANOPROST. [Concomitant]
     Active Substance: LATANOPROST
     Dosage: 0.005 % SOLUTION
     Route: 047
  5. XOLAIR [Suspect]
     Active Substance: OMALIZUMAB
     Indication: GIANT CELL ARTERITIS
     Dosage: INJECT 150MG SUBCUTANEOUSLY EVERY 14 DAY(S)
     Route: 058
  6. XOLAIR [Suspect]
     Active Substance: OMALIZUMAB
  7. XOLAIR [Suspect]
     Active Substance: OMALIZUMAB
  8. ALBUTEROL. [Concomitant]
     Active Substance: ALBUTEROL
  9. CLONAZEPAM. [Concomitant]
     Active Substance: CLONAZEPAM
     Route: 048
  10. ADVAIR HFA [Concomitant]
     Active Substance: FLUTICASONE PROPIONATE\SALMETEROL XINAFOATE
     Dosage: 250-20 MCG
  11. FENTANYL. [Concomitant]
     Active Substance: FENTANYL
     Dosage: 75 MCG/HR
     Route: 062
  12. MONTELUKAST [Concomitant]
     Active Substance: MONTELUKAST SODIUM
  13. XOLAIR [Suspect]
     Active Substance: OMALIZUMAB
  14. ACTEMRA [Suspect]
     Active Substance: TOCILIZUMAB
     Indication: PRODUCT USED FOR UNKNOWN INDICATION
     Dosage: INJECT 162MG SUBCUTANEOUSLY EVERY WEEK
     Route: 058
  15. NAMENDA XR [Concomitant]
     Active Substance: MEMANTINE HYDROCHLORIDE
     Route: 048
  16. VENTOLIN [Concomitant]
     Active Substance: ALBUTEROL SULFATE
  17. XOLAIR [Suspect]
     Active Substance: OMALIZUMAB
  18. PROAIR HFA [Concomitant]
     Active Substance: ALBUTEROL SULFATE
  19. XOLAIR [Suspect]
     Active Substance: OMALIZUMAB
     Indication: POLYMYALGIA RHEUMATICA
  20. PENICILLINA [Concomitant]
     Active Substance: PENICILLIN G SODIUM

REACTIONS (4)
  - COVID-19 [Unknown]
  - Off label use [Unknown]
  - Intentional product use issue [Unknown]
  - Intentional product misuse [Unknown]
